FAERS Safety Report 14665821 (Version 1)
Quarter: 2018Q1

REPORT INFORMATION
  Report Type: Other
  Country: JP (occurrence: JP)
  Receive Date: 20180321
  Receipt Date: 20180321
  Transmission Date: 20180509
  Serious: Yes (Other)
  Sender: FDA-Public Use
  Company Number: JP-ALSI-201800161

PATIENT
  Age: 8 Month
  Sex: Female
  Weight: 8 kg

DRUGS (1)
  1. OXYGEN. [Suspect]
     Active Substance: OXYGEN
     Indication: HYPOXIA
     Route: 055

REACTIONS (1)
  - Aerophagia [Recovering/Resolving]
